FAERS Safety Report 21116821 (Version 3)
Quarter: 2022Q3

REPORT INFORMATION
  Report Type: Spontaneous
  Country: US (occurrence: US)
  Receive Date: 20220722
  Receipt Date: 20220825
  Transmission Date: 20221027
  Serious: Yes (Other)
  Sender: FDA-Public Use
  Company Number: US-CELLTRION INC.-2022US011382

PATIENT

DRUGS (2)
  1. TRUXIMA [Suspect]
     Active Substance: RITUXIMAB-ABBS
     Indication: Plasma cell myeloma
     Dosage: 1000 MG EVERY 28 DAYS
     Route: 042
     Dates: start: 202201
  2. DARZALEX [Concomitant]
     Active Substance: DARATUMUMAB

REACTIONS (4)
  - Suspected COVID-19 [Unknown]
  - Dyspnoea [Unknown]
  - Intentional dose omission [Unknown]
  - Off label use [Unknown]
